APPROVED DRUG PRODUCT: MACROBID
Active Ingredient: NITROFURANTOIN; NITROFURANTOIN, MACROCRYSTALLINE
Strength: 75MG;25MG
Dosage Form/Route: CAPSULE;ORAL
Application: N020064 | Product #001 | TE Code: AB
Applicant: ALMATICA PHARMA LLC
Approved: Dec 24, 1991 | RLD: Yes | RS: Yes | Type: RX